FAERS Safety Report 16081729 (Version 3)
Quarter: 2019Q2

REPORT INFORMATION
  Report Type: Report from Study
  Country: US (occurrence: US)
  Receive Date: 20190316
  Receipt Date: 20190503
  Transmission Date: 20190711
  Serious: Yes (Death, Hospitalization)
  Sender: FDA-Public Use
  Company Number: PHEH2019US010460

PATIENT
  Sex: Male

DRUGS (1)
  1. PROMACTA [Suspect]
     Active Substance: ELTROMBOPAG OLAMINE
     Indication: MYELODYSPLASTIC SYNDROME
     Dosage: 75 MG, QID
     Route: 048
     Dates: start: 20170302

REACTIONS (7)
  - Pulmonary sepsis [Unknown]
  - Inappropriate schedule of product administration [Unknown]
  - Cardiomyopathy [Fatal]
  - Pyrexia [Unknown]
  - Hypotension [Unknown]
  - End stage renal disease [Fatal]
  - Hypertension [Not Recovered/Not Resolved]
